FAERS Safety Report 12676079 (Version 2)
Quarter: 2016Q4

REPORT INFORMATION
  Report Type: Spontaneous
  Country: US (occurrence: US)
  Receive Date: 20160823
  Receipt Date: 20161228
  Transmission Date: 20170207
  Serious: No
  Sender: FDA-Public Use
  Company Number: US-BRISTOL-MYERS SQUIBB COMPANY-BMS-2016-065684

PATIENT
  Sex: Female
  Weight: 68 kg

DRUGS (1)
  1. ORENCIA [Suspect]
     Active Substance: ABATACEPT
     Indication: RHEUMATOID ARTHRITIS
     Dosage: 125 MG, QWK
     Route: 058
     Dates: start: 201606, end: 201608

REACTIONS (5)
  - Lip dry [Recovered/Resolved]
  - Lip infection [Unknown]
  - Lip haemorrhage [Unknown]
  - Hepatic lesion [Unknown]
  - Paraesthesia [Unknown]
